FAERS Safety Report 16350708 (Version 5)
Quarter: 2024Q4

REPORT INFORMATION
  Report Type: Spontaneous
  Country: US (occurrence: US)
  Receive Date: 20190524
  Receipt Date: 20241114
  Transmission Date: 20250114
  Serious: Yes (Hospitalization, Other)
  Sender: GILEAD
  Company Number: US-GILEAD-2019-0409332

PATIENT
  Age: 44 Year
  Sex: Male

DRUGS (54)
  1. VIREAD [Suspect]
     Active Substance: TENOFOVIR DISOPROXIL FUMARATE
     Indication: HIV infection
     Dosage: UNK
     Route: 048
     Dates: start: 2009, end: 2011
  2. VIREAD [Suspect]
     Active Substance: TENOFOVIR DISOPROXIL FUMARATE
     Dosage: UNK
     Route: 048
     Dates: start: 2002, end: 2004
  3. VIREAD [Suspect]
     Active Substance: TENOFOVIR DISOPROXIL FUMARATE
     Dosage: UNK
     Route: 048
     Dates: start: 2008
  4. TRUVADA [Suspect]
     Active Substance: EMTRICITABINE\TENOFOVIR DISOPROXIL FUMARATE
     Indication: HIV infection
     Dosage: UNK
     Route: 065
     Dates: start: 2011, end: 2015
  5. TRUVADA [Suspect]
     Active Substance: EMTRICITABINE\TENOFOVIR DISOPROXIL FUMARATE
     Dosage: UNK
     Route: 048
     Dates: start: 201203
  6. STRIBILD [Suspect]
     Active Substance: COBICISTAT\ELVITEGRAVIR\EMTRICITABINE\TENOFOVIR DISOPROXIL FUMARATE
     Indication: HIV infection
     Dosage: UNK
     Route: 048
     Dates: start: 2015, end: 201707
  7. STRIBILD [Suspect]
     Active Substance: COBICISTAT\ELVITEGRAVIR\EMTRICITABINE\TENOFOVIR DISOPROXIL FUMARATE
     Dosage: UNK
     Route: 048
     Dates: start: 2013, end: 2015
  8. ATRIPLA [Suspect]
     Active Substance: EFAVIRENZ\EMTRICITABINE\TENOFOVIR DISOPROXIL FUMARATE
     Indication: HIV infection
     Dosage: UNK
     Route: 048
     Dates: start: 2007, end: 2012
  9. GENVOYA [Concomitant]
     Active Substance: COBICISTAT\ELVITEGRAVIR\EMTRICITABINE\TENOFOVIR ALAFENAMIDE FUMARATE
     Indication: HIV infection
     Dosage: 1 DOSAGE FORM (150-150-200-10 MG), QD
     Route: 048
  10. EMTRIVA [Concomitant]
     Active Substance: EMTRICITABINE
  11. ISENTRESS [Concomitant]
     Active Substance: RALTEGRAVIR POTASSIUM
  12. REYATAZ [Concomitant]
     Active Substance: ATAZANAVIR SULFATE
  13. NORVIR [Concomitant]
     Active Substance: RITONAVIR
  14. KALETRA [Concomitant]
     Active Substance: LOPINAVIR\RITONAVIR
  15. COMBIVIR [Concomitant]
     Active Substance: LAMIVUDINE\ZIDOVUDINE
  16. LEXIVA [Concomitant]
     Active Substance: FOSAMPRENAVIR CALCIUM
  17. PREZISTA [Concomitant]
     Active Substance: DARUNAVIR ETHANOLATE
  18. INVIRASE [Concomitant]
     Active Substance: SAQUINAVIR MESYLATE
  19. EPZICOM [Concomitant]
     Active Substance: ABACAVIR SULFATE\LAMIVUDINE
  20. EPIVIR [Concomitant]
     Active Substance: LAMIVUDINE
  21. SUSTIVA [Concomitant]
     Active Substance: EFAVIRENZ
  22. VIRAMUNE [Concomitant]
     Active Substance: NEVIRAPINE
  23. VITAMIN B12 [Concomitant]
     Active Substance: CYANOCOBALAMIN
  24. ZANAFLEX [Concomitant]
     Active Substance: TIZANIDINE HYDROCHLORIDE
  25. NAPRELAN [Concomitant]
     Active Substance: NAPROXEN SODIUM
  26. VICODIN [Concomitant]
     Active Substance: ACETAMINOPHEN\HYDROCODONE BITARTRATE
  27. AUGMENTIN [Concomitant]
     Active Substance: AMOXICILLIN\CLAVULANATE POTASSIUM
  28. MUCINEX [Concomitant]
     Active Substance: GUAIFENESIN
  29. TENORMIN [Concomitant]
     Active Substance: ATENOLOL
  30. RHINOCORT AQUA [Concomitant]
     Active Substance: BUDESONIDE
  31. PRILOSEC [Concomitant]
     Active Substance: OMEPRAZOLE MAGNESIUM
  32. ZYRTEC [Concomitant]
     Active Substance: CETIRIZINE HYDROCHLORIDE
  33. PROAIR HFA [Concomitant]
     Active Substance: ALBUTEROL SULFATE
  34. DOXYCYCLINE [Concomitant]
     Active Substance: DOXYCYCLINE
  35. ZITHROMAX [Concomitant]
     Active Substance: AZITHROMYCIN DIHYDRATE
  36. LEVOFLOXACIN [Concomitant]
     Active Substance: LEVOFLOXACIN
  37. LASIX [Concomitant]
     Active Substance: FUROSEMIDE
  38. NEURONTIN [Concomitant]
     Active Substance: GABAPENTIN
  39. NORCO [Concomitant]
     Active Substance: ACETAMINOPHEN\HYDROCODONE BITARTRATE
  40. IMODIUM [Concomitant]
     Active Substance: LOPERAMIDE HYDROCHLORIDE
  41. NASONEX [Concomitant]
     Active Substance: MOMETASONE FUROATE
  42. NAPROSYN [Concomitant]
     Active Substance: NAPROXEN
  43. VALTREX [Concomitant]
     Active Substance: VALACYCLOVIR HYDROCHLORIDE
  44. NICODERM CQ [Concomitant]
     Active Substance: NICOTINE
  45. NASALIDE [Concomitant]
     Active Substance: FLUNISOLIDE
  46. VENTOLIN HFA [Concomitant]
     Active Substance: ALBUTEROL SULFATE
  47. LEVOTHYROXINE [Concomitant]
     Active Substance: LEVOTHYROXINE
  48. ROPINIROLE [Concomitant]
     Active Substance: ROPINIROLE
  49. IBUPROFEN [Concomitant]
     Active Substance: IBUPROFEN
  50. MIRTAZAPINE [Concomitant]
     Active Substance: MIRTAZAPINE
  51. NEXIUM [Concomitant]
     Active Substance: ESOMEPRAZOLE MAGNESIUM
  52. MEGACE [Concomitant]
     Active Substance: MEGESTROL ACETATE
  53. SILENOR [Concomitant]
     Active Substance: DOXEPIN HYDROCHLORIDE
  54. CYCLOBENZAPRINE [Concomitant]
     Active Substance: CYCLOBENZAPRINE

REACTIONS (14)
  - Spinal fracture [Not Recovered/Not Resolved]
  - Renal failure [Not Recovered/Not Resolved]
  - Chronic kidney disease [Not Recovered/Not Resolved]
  - Osteoporosis [Not Recovered/Not Resolved]
  - Bone density decreased [Unknown]
  - Emotional distress [Not Recovered/Not Resolved]
  - Economic problem [Not Recovered/Not Resolved]
  - Anhedonia [Not Recovered/Not Resolved]
  - Anxiety [Not Recovered/Not Resolved]
  - Pain [Not Recovered/Not Resolved]
  - Osteonecrosis [Unknown]
  - Multiple fractures [Not Recovered/Not Resolved]
  - Renal injury [Unknown]
  - Bone loss [Unknown]

NARRATIVE: CASE EVENT DATE: 20150301
